FAERS Safety Report 25572597 (Version 2)
Quarter: 2025Q3

REPORT INFORMATION
  Report Type: Spontaneous
  Country: TR (occurrence: TR)
  Receive Date: 20250717
  Receipt Date: 20250724
  Transmission Date: 20251021
  Serious: Yes (Life-Threatening, Hospitalization, Other)
  Sender: PFIZER
  Company Number: TR-PFIZER INC-202500142190

PATIENT
  Age: 34 Year
  Sex: Female

DRUGS (15)
  1. METHOTREXATE SODIUM [Suspect]
     Active Substance: METHOTREXATE SODIUM
     Indication: B-cell type acute leukaemia
     Route: 037
     Dates: start: 202412
  2. METHOTREXATE SODIUM [Suspect]
     Active Substance: METHOTREXATE SODIUM
     Dosage: 1000 MG/M2, DAILY HYPER-CVAD (SECOND CYCLE)
     Dates: start: 20250106
  3. METHOTREXATE SODIUM [Suspect]
     Active Substance: METHOTREXATE SODIUM
     Route: 037
     Dates: start: 202501
  4. CYCLOPHOSPHAMIDE [Concomitant]
     Active Substance: CYCLOPHOSPHAMIDE
     Indication: B-cell type acute leukaemia
     Dosage: 600 MG/M2, DAILY (2X300 MG/M2/DAY) (HYPER-CVAD (FIRST CYCLE)
     Dates: start: 202412
  5. VINCRISTINE [Concomitant]
     Active Substance: VINCRISTINE
     Indication: B-cell type acute leukaemia
     Dosage: 2 MG, DAILY HYPER-CVAD (FIRST CYCLE)
     Dates: start: 202412
  6. ADRIAMYCIN [Concomitant]
     Active Substance: DOXORUBICIN HYDROCHLORIDE
     Indication: B-cell type acute leukaemia
     Dosage: 50 MG/M2, DAILY HYPER-CVAD (FIRST CYCLE)
     Dates: start: 202412
  7. DECORT [Concomitant]
     Indication: B-cell type acute leukaemia
     Dosage: 40 MG, DAILY HYPER-CVAD (FIRST CYCLE)
     Dates: start: 202412
  8. CYTARABINE [Concomitant]
     Active Substance: CYTARABINE
     Indication: B-cell type acute leukaemia
     Dates: start: 202412
  9. CYTARABINE [Concomitant]
     Active Substance: CYTARABINE
     Dosage: 6000 MG/M2, DAILY (2X3000 MG/M2/DAY) HYPER-CVAD (SECOND CYCLE)
     Dates: start: 20250106, end: 20250107
  10. CYTARABINE [Concomitant]
     Active Substance: CYTARABINE
     Dates: start: 202501
  11. PREDNISOLONE [Concomitant]
     Active Substance: PREDNISOLONE
     Indication: B-cell type acute leukaemia
     Dosage: 50 MG/M2, DAILY (2X25 MG/M2/DAY) HYPER-CVAD (SECOND CYCLE)
     Dates: start: 20250106, end: 20250108
  12. CEFOPERAZONE SODIUM\SULBACTAM [Concomitant]
     Active Substance: CEFOPERAZONE SODIUM\SULBACTAM
     Indication: Neutropenia
     Dates: start: 202501, end: 202501
  13. FILGRASTIM [Concomitant]
     Active Substance: FILGRASTIM
     Indication: Neutropenia
     Dates: start: 202501
  14. COLISTIN [Concomitant]
     Active Substance: COLISTIN
     Dates: start: 202501
  15. IMIPENEM [Concomitant]
     Active Substance: IMIPENEM
     Dates: start: 202501

REACTIONS (3)
  - Acute kidney injury [Unknown]
  - Toxic epidermal necrolysis [Unknown]
  - Neutropenia [Unknown]

NARRATIVE: CASE EVENT DATE: 20250101
